FAERS Safety Report 9399808 (Version 2)
Quarter: 2013Q4

REPORT INFORMATION
  Report Type: Spontaneous
  Country: US (occurrence: US)
  Receive Date: 20130715
  Receipt Date: 20131007
  Transmission Date: 20140711
  Serious: Yes (Hospitalization, Other)
  Sender: FDA-Public Use
  Company Number: PHEH2013US014554

PATIENT
  Sex: Female

DRUGS (2)
  1. VIVELLE DOT [Suspect]
     Dosage: 0.1 MG, QW2
     Route: 062
  2. VITAMIN D [Concomitant]
     Dosage: UNK UKN, UNK

REACTIONS (2)
  - Neoplasm malignant [Unknown]
  - Arthritis [Unknown]
